FAERS Safety Report 7241257-1 (Version None)
Quarter: 2011Q1

REPORT INFORMATION
  Report Type: 
  Country: None (occurrence: None)
  Receive Date: 20110124
  Receipt Date: 20110114
  Transmission Date: 20110831
  Serious: Yes (Death, Hospitalization)
  Sender: FDA-Public Use
  Company Number: A0900425A

PATIENT
  Age: 70 Year
  Sex: Female
  Weight: 54.5 kg

DRUGS (2)
  1. TYKERB [Suspect]
     Indication: BREAST CANCER
     Dosage: 250MG UNKNOWN
     Route: 048
     Dates: start: 20091013
  2. XELODA [Suspect]
     Indication: BREAST CANCER
     Dates: start: 20091013

REACTIONS (9)
  - MUCOUS MEMBRANE DISORDER [None]
  - METASTASES TO LIVER [None]
  - DEHYDRATION [None]
  - TOXICITY TO VARIOUS AGENTS [None]
  - DEATH [None]
  - BREAST CANCER [None]
  - PAIN [None]
  - METASTASES TO BONE [None]
  - DIARRHOEA [None]
